FAERS Safety Report 4637578-9 (Version None)
Quarter: 2005Q2

REPORT INFORMATION
  Report Type: 
  Country: None (occurrence: None)
  Receive Date: 20050418
  Receipt Date: 20050404
  Transmission Date: 20051028
  Serious: Yes (Death)
  Sender: FDA-Public Use
  Company Number: TW-BOEHRINGER INGELHEIM PHARMACEUTICALS, INC.-2005-DE-01311GD

PATIENT
  Age: 54 Year
  Sex: Female
  Weight: 59 kg

DRUGS (12)
  1. MORPHINE [Suspect]
     Indication: POST PROCEDURAL PAIN
     Route: 008
  2. MORPHINE [Suspect]
     Dosage: 0.02 MG/ML AT 2 ML/H BASAL INFUSION RATE, WITH A 1 ML DEMAND AND A 20-MINUTE LOCKOUT INTERVAL
     Route: 008
  3. MORPHINE [Suspect]
     Dosage: 0.02 MG/ML AT A BASAL INFUSION RATE OF 1.2 ML/H
     Route: 008
  4. BUPIVACAINE [Suspect]
     Indication: POST PROCEDURAL PAIN
     Dosage: 0.0625 % AT 2 ML/H BASAL NFUSION RATE, WITH A 1 ML DEMAND AND A 20-MINUTE LOCKOUT INTERVAL
     Route: 008
  5. BUPIVACAINE [Suspect]
     Dosage: 10 ML LOADING DOSE OF 0.25 % BUPIVACAINE
     Route: 008
  6. RINGER'S [Suspect]
     Indication: FLUID REPLACEMENT
     Route: 042
  7. LIGNOCAINE [Concomitant]
     Indication: POST PROCEDURAL PAIN
     Dosage: 2 ML OF 2 % LIGNOCAINE
     Route: 008
  8. GLYCOPYRROLATE [Concomitant]
     Indication: PREMEDICATION
  9. FENTANYL CITRATE [Concomitant]
     Indication: ANAESTHESIA
  10. THIOPENTONE [Concomitant]
     Indication: ANAESTHESIA
  11. ATRACURIUM [Concomitant]
     Indication: ANAESTHESIA
  12. ISOFLURANE [Concomitant]
     Indication: ANAESTHESIA

REACTIONS (8)
  - APALLIC SYNDROME [None]
  - CARDIAC ARREST [None]
  - DIZZINESS [None]
  - LETHARGY [None]
  - LOSS OF CONSCIOUSNESS [None]
  - NAUSEA [None]
  - RESPIRATORY ARREST [None]
  - SINUS BRADYCARDIA [None]
